FAERS Safety Report 13613893 (Version 1)
Quarter: 2017Q2

REPORT INFORMATION
  Report Type: Spontaneous
  Country: US (occurrence: US)
  Receive Date: 20170606
  Receipt Date: 20170606
  Transmission Date: 20170830
  Serious: No
  Sender: FDA-Public Use
  Company Number: US-TEVA-717384ACC

PATIENT
  Sex: Female

DRUGS (1)
  1. MINOXIDIL TOPICAL SOLUTION MN [Suspect]
     Active Substance: MINOXIDIL
     Indication: ALOPECIA
     Dosage: SOLUTION
     Route: 061
     Dates: start: 201604

REACTIONS (5)
  - Incorrect dose administered [None]
  - Drug ineffective [Unknown]
  - Off label use [None]
  - Product selection error [Unknown]
  - Hair colour changes [Recovering/Resolving]
